FAERS Safety Report 4996922-3 (Version None)
Quarter: 2006Q2

REPORT INFORMATION
  Report Type: 
  Country: None (occurrence: None)
  Receive Date: 20060508
  Receipt Date: 20060508
  Transmission Date: 20061013
  Serious: No
  Sender: FDA-Public Use
  Company Number: None

PATIENT
  Age: 43 Year
  Sex: Female
  Weight: 61.2356 kg

DRUGS (2)
  1. AMBIEN [Suspect]
     Indication: DEPRESSION
     Dosage: CANNOT REMEMBER    NIGHTLY   PO
     Route: 048
  2. AMBIEN [Suspect]
     Indication: INSOMNIA
     Dosage: CANNOT REMEMBER    NIGHTLY   PO
     Route: 048

REACTIONS (5)
  - ABNORMAL BEHAVIOUR [None]
  - ABNORMAL SLEEP-RELATED EVENT [None]
  - AMNESIA [None]
  - EATING DISORDER [None]
  - LOSS OF CONSCIOUSNESS [None]
